FAERS Safety Report 8308294-7 (Version None)
Quarter: 2012Q2

REPORT INFORMATION
  Report Type: 
  Country: None (occurrence: None)
  Receive Date: 20120424
  Receipt Date: 20120418
  Transmission Date: 20120825
  Serious: Yes (Life-Threatening, Hospitalization)
  Sender: FDA-Public Use
  Company Number: ES-PFIZER INC-2012095921

PATIENT
  Age: 31 Year
  Sex: Male

DRUGS (6)
  1. DIAZEPAM [Interacting]
     Dosage: 900 MG, TOTAL
     Route: 048
     Dates: start: 20111223, end: 20111223
  2. LORMETAZEPAM [Interacting]
     Dosage: 60 MG, TOTAL
     Route: 048
     Dates: start: 20111223, end: 20111223
  3. LYRICA [Suspect]
     Dosage: 30 G, TOTAL
     Route: 048
     Dates: start: 20111223, end: 20111223
  4. ETUMINA [Interacting]
     Dosage: 1.6 G, TOTAL
     Route: 048
     Dates: start: 20111223, end: 20111223
  5. SEROQUEL [Interacting]
     Dosage: 13.6 G, TOTAL
     Route: 048
     Dates: start: 20111223, end: 20111223
  6. FLUVOXAMINE MALEATE [Interacting]
     Dosage: 4.2 G, TOTAL
     Route: 048
     Dates: start: 20111223, end: 20111223

REACTIONS (4)
  - INTENTIONAL OVERDOSE [None]
  - COMA [None]
  - MYOCLONUS [None]
  - DRUG INTERACTION [None]
